FAERS Safety Report 9160419 (Version 1)
Quarter: 2013Q1

REPORT INFORMATION
  Report Type: Spontaneous
  Country: AU (occurrence: AU)
  Receive Date: 20130313
  Receipt Date: 20130313
  Transmission Date: 20140127
  Serious: Yes (Disabling, Other)
  Sender: FDA-Public Use
  Company Number: AU-PFIZER INC-2013061702

PATIENT
  Age: 38 Year
  Sex: Male
  Weight: 90 kg

DRUGS (9)
  1. LYRICA [Suspect]
     Indication: NEURALGIA
     Dosage: 75 MG, 2X/DAY
     Route: 048
     Dates: start: 20120316, end: 20130131
  2. LYRICA [Suspect]
     Dosage: 150 MG, 2X/DAY
     Route: 048
     Dates: start: 2013, end: 2013
  3. FENTANYL [Concomitant]
  4. LEXAPRO [Concomitant]
  5. TEMAZEPAM [Concomitant]
  6. DIAZEPAM [Concomitant]
  7. ATACAND [Concomitant]
  8. LIPITOR [Concomitant]
  9. SEROQUEL [Concomitant]

REACTIONS (5)
  - Dissociative fugue [Recovering/Resolving]
  - Memory impairment [Recovering/Resolving]
  - Presyncope [Recovering/Resolving]
  - Loss of consciousness [Unknown]
  - Depression [Unknown]
